FAERS Safety Report 9969764 (Version 1)
Quarter: 2014Q1

REPORT INFORMATION
  Report Type: Spontaneous
  Country: US (occurrence: None)
  Receive Date: 20140131
  Receipt Date: 20140131
  Transmission Date: 20141002
  Serious: Yes (Other)
  Sender: FDA-Public Use
  Company Number: 085335

PATIENT
  Age: 24 Year
  Sex: Male
  Weight: 82 kg

DRUGS (2)
  1. KEPPRA [Suspect]
     Route: 048
     Dates: end: 20130425
  2. LACOSAMIDE [Concomitant]

REACTIONS (1)
  - Convulsion [None]
